FAERS Safety Report 18621820 (Version 1)
Quarter: 2020Q4

REPORT INFORMATION
  Report Type: Spontaneous
  Country: IL (occurrence: IL)
  Receive Date: 20201216
  Receipt Date: 20201216
  Transmission Date: 20210114
  Serious: Yes (Other)
  Sender: FDA-Public Use
  Company Number: IL-ROCHE-2728224

PATIENT
  Age: 32 Year
  Sex: Female

DRUGS (2)
  1. AVASTIN [Suspect]
     Active Substance: BEVACIZUMAB
     Indication: RETINAL TEAR
  2. AVASTIN [Suspect]
     Active Substance: BEVACIZUMAB
     Indication: MACULAR DEGENERATION
     Dosage: 3 INJECTIONS, INJECTION
     Route: 065
     Dates: start: 20200101

REACTIONS (12)
  - Confusional state [Unknown]
  - Feeling abnormal [Unknown]
  - Visual acuity reduced [Unknown]
  - Retinal scar [Unknown]
  - Helplessness [Unknown]
  - Neoplasm [Unknown]
  - Off label use [Unknown]
  - Dry eye [Unknown]
  - Intentional product use issue [Unknown]
  - Stress [Unknown]
  - Frustration tolerance decreased [Unknown]
  - Anxiety [Unknown]
